FAERS Safety Report 5719904-2 (Version None)
Quarter: 2008Q2

REPORT INFORMATION
  Report Type: 
  Country: None (occurrence: None)
  Receive Date: 20080424
  Receipt Date: 20080418
  Transmission Date: 20081010
  Serious: Yes (Other)
  Sender: FDA-Public Use
  Company Number: 2008SP007427

PATIENT
  Age: 45 Year
  Sex: Female

DRUGS (2)
  1. PEG-INTRON [Suspect]
     Indication: HEPATITIS C
     Dosage: SC
     Route: 058
     Dates: start: 20071217
  2. RIBAVIRIN [Suspect]
     Indication: HEPATITIS C
     Dosage: PO
     Route: 048
     Dates: start: 20071217

REACTIONS (13)
  - CHAPPED LIPS [None]
  - DEHYDRATION [None]
  - DRY EYE [None]
  - DRY MOUTH [None]
  - DRY SKIN [None]
  - HEADACHE [None]
  - LIP EXFOLIATION [None]
  - NAUSEA [None]
  - PAIN OF SKIN [None]
  - PROTEIN TOTAL DECREASED [None]
  - STOMATITIS [None]
  - VISUAL DISTURBANCE [None]
  - VITAMIN D DEFICIENCY [None]
